FAERS Safety Report 25044637 (Version 1)
Quarter: 2025Q1

REPORT INFORMATION
  Report Type: Report from Study
  Country: US (occurrence: US)
  Receive Date: 20250306
  Receipt Date: 20250306
  Transmission Date: 20250409
  Serious: No
  Sender: ACADIA PHARMACEUTICALS
  Company Number: US-ACADIA PHARMACEUTICALS INC.-ACA-2025-PIM-001933

PATIENT
  Age: 80 Year
  Sex: Male

DRUGS (15)
  1. NUPLAZID [Suspect]
     Active Substance: PIMAVANSERIN TARTRATE
     Indication: Parkinson^s disease
     Dosage: 34 MILLIGRAM, QD
     Route: 048
     Dates: start: 20240416
  2. RISPERDAL [Concomitant]
     Active Substance: RISPERIDONE
  3. JUBLIA [Concomitant]
     Active Substance: EFINACONAZOLE
  4. SYNTHROID [Concomitant]
     Active Substance: LEVOTHYROXINE SODIUM
  5. PRAVASTATIN [Concomitant]
     Active Substance: PRAVASTATIN
  6. ELIQUIS [Concomitant]
     Active Substance: APIXABAN
  7. DONEPEZIL [Concomitant]
     Active Substance: DONEPEZIL
  8. LOSARTAN [Concomitant]
     Active Substance: LOSARTAN
  9. VITAMIN C [Concomitant]
     Active Substance: ASCORBIC ACID
  10. DHIVY [Concomitant]
     Active Substance: CARBIDOPA\LEVODOPA
  11. SINGULAIR [Concomitant]
     Active Substance: MONTELUKAST SODIUM
  12. WIXELA INHUB [Concomitant]
     Active Substance: FLUTICASONE PROPIONATE\SALMETEROL XINAFOATE
  13. METOPROLOL SUCCINATE [Concomitant]
     Active Substance: METOPROLOL SUCCINATE
  14. FOLIC ACID [Concomitant]
     Active Substance: FOLIC ACID
  15. CARBIDOPA\LEVODOPA [Concomitant]
     Active Substance: CARBIDOPA\LEVODOPA

REACTIONS (2)
  - Memory impairment [Recovered/Resolved]
  - Intentional dose omission [Recovered/Resolved]

NARRATIVE: CASE EVENT DATE: 20250205
